FAERS Safety Report 4574048-0 (Version None)
Quarter: 2005Q1

REPORT INFORMATION
  Report Type: 
  Country: None (occurrence: None)
  Receive Date: 20050204
  Receipt Date: 20050110
  Transmission Date: 20050727
  Serious: Yes (Hospitalization)
  Sender: FDA-Public Use
  Company Number: 2004104014

PATIENT
  Age: 72 Year
  Sex: Female
  Weight: 72.5755 kg

DRUGS (6)
  1. LIPITOR [Suspect]
     Indication: BLOOD CHOLESTEROL INCREASED
     Dosage: 10 MG (10 MG, 1 IN 1 D), ORAL
     Route: 048
     Dates: start: 20040101, end: 20040901
  2. VALPROATE SODIUM [Concomitant]
  3. FOLIC ACID [Concomitant]
  4. DICLOFENAC SODIUM [Concomitant]
  5. LISINOPRIL [Concomitant]
  6. METHOTREXATE [Concomitant]

REACTIONS (4)
  - FALL [None]
  - OSTEOPOROSIS [None]
  - PAIN IN EXTREMITY [None]
  - SKELETAL INJURY [None]
